FAERS Safety Report 9407921 (Version 3)
Quarter: 2014Q1

REPORT INFORMATION
  Report Type: Spontaneous
  Country: US (occurrence: US)
  Receive Date: 20130718
  Receipt Date: 20140129
  Transmission Date: 20141002
  Serious: Yes (Hospitalization)
  Sender: FDA-Public Use
  Company Number: US-PFIZER INC-2013210925

PATIENT
  Age: 45 Year
  Sex: Female
  Weight: 60.32 kg

DRUGS (1)
  1. LYRICA [Suspect]
     Indication: FIBROMYALGIA
     Dosage: 75 MG, 3X/DAY
     Dates: start: 2013, end: 20130714

REACTIONS (3)
  - Drug withdrawal syndrome [Unknown]
  - Bone disorder [Unknown]
  - Pain [Unknown]
